FAERS Safety Report 5274313-8 (Version None)
Quarter: 2007Q1

REPORT INFORMATION
  Report Type: 
  Country: None (occurrence: None)
  Receive Date: 20070323
  Receipt Date: 20070316
  Transmission Date: 20070707
  Serious: Yes (Death, Other)
  Sender: FDA-Public Use
  Company Number: GB-AMGEN-UK215689

PATIENT
  Sex: Female
  Weight: 47 kg

DRUGS (2)
  1. KINERET [Suspect]
     Indication: RHEUMATOID ARTHRITIS
     Route: 065
     Dates: start: 20030921, end: 20040515
  2. CELECOXIB [Concomitant]
     Route: 065

REACTIONS (2)
  - DEATH [None]
  - SKIN CANCER [None]
